FAERS Safety Report 8791223 (Version 1)
Quarter: 2012Q4

REPORT INFORMATION
  Report Type: Spontaneous
  Country: TR (occurrence: None)
  Receive Date: 20120911
  Receipt Date: 20120911
  Transmission Date: 20130627
  Serious: Yes (Hospitalization)
  Sender: FDA-Public Use
  Company Number: FK201202562

PATIENT
  Age: 42 Year
  Sex: Male

DRUGS (1)
  1. CEFTRIAXON (MANUFACTURER UNKNOWN) (CEFTRIAXON-DINATRIUM) (CEFTRIAXON-DINATRIUM) [Suspect]

REACTIONS (10)
  - Coronary artery stenosis [None]
  - Lip swelling [None]
  - Kounis syndrome [None]
  - Arteriospasm coronary [None]
  - Lip dry [None]
  - Acute myocardial infarction [None]
  - Hypersensitivity [None]
  - Blood pressure diastolic decreased [None]
  - Nausea [None]
  - Acute coronary syndrome [None]
